FAERS Safety Report 7623254-7 (Version None)
Quarter: 2011Q3

REPORT INFORMATION
  Report Type: 
  Country: None (occurrence: None)
  Receive Date: 20110720
  Receipt Date: 20110711
  Transmission Date: 20111222
  Serious: Yes (Death, Hospitalization)
  Sender: FDA-Public Use
  Company Number: SE-JNJFOC-20110606595

PATIENT
  Sex: Female

DRUGS (10)
  1. IBUPROFEN [Suspect]
     Indication: PAIN
     Route: 048
     Dates: start: 20110201, end: 20110401
  2. METOPROLOL TARTRATE [Concomitant]
  3. SIMVASTATIN [Concomitant]
  4. BEHEPAN [Concomitant]
  5. ENALAPRIL MALEATE [Concomitant]
  6. ALVEDON [Concomitant]
     Indication: PAIN
  7. ASPIRIN [Concomitant]
  8. NITRAZEPAM [Concomitant]
  9. FUROSEMIDE [Concomitant]
  10. GLYTRIN [Concomitant]

REACTIONS (3)
  - CARDIAC FAILURE [None]
  - PNEUMOCOCCAL INFECTION [None]
  - NORMOCHROMIC NORMOCYTIC ANAEMIA [None]
